FAERS Safety Report 9886583 (Version 2)
Quarter: 2014Q1

REPORT INFORMATION
  Report Type: Spontaneous
  Country: DE (occurrence: DE)
  Receive Date: 20140210
  Receipt Date: 20140210
  Transmission Date: 20141002
  Serious: Yes (Hospitalization)
  Sender: FDA-Public Use
  Company Number: DE-ABBVIE-13P-062-1180948-00

PATIENT
  Age: 35 Year
  Sex: Male
  Weight: 70 kg

DRUGS (8)
  1. HUMIRA [Suspect]
     Indication: CROHN^S DISEASE
     Route: 058
     Dates: start: 201305
  2. PREDNISOLONE [Concomitant]
     Indication: PRODUCT USED FOR UNKNOWN INDICATION
  3. AZATHIOPRIN [Concomitant]
     Indication: PRODUCT USED FOR UNKNOWN INDICATION
  4. PANTOZOL [Concomitant]
     Indication: PRODUCT USED FOR UNKNOWN INDICATION
     Route: 048
     Dates: end: 201312
  5. SALOFALK [Concomitant]
     Indication: PRODUCT USED FOR UNKNOWN INDICATION
     Route: 048
  6. ZINC-OROTAT [Concomitant]
     Indication: PRODUCT USED FOR UNKNOWN INDICATION
  7. VITAMIN B12 [Concomitant]
     Indication: PRODUCT USED FOR UNKNOWN INDICATION
     Dosage: LAST INJECTION 16 JAN 2014
     Route: 058
  8. MAGNESIUM [Concomitant]
     Indication: MAGNESIUM DEFICIENCY

REACTIONS (12)
  - Haemangioma [Unknown]
  - Intestinal resection [Recovered/Resolved]
  - Oedema [Not Recovered/Not Resolved]
  - Protein deficiency [Not Recovered/Not Resolved]
  - Oedema [Not Recovered/Not Resolved]
  - Malnutrition [Not Recovered/Not Resolved]
  - Weight increased [Not Recovered/Not Resolved]
  - Anaemia [Unknown]
  - Magnesium deficiency [Recovered/Resolved]
  - Hypoalbuminaemia [Recovered/Resolved]
  - Duodenostomy [Recovered/Resolved]
  - Fistula [Recovered/Resolved]
